FAERS Safety Report 25641296 (Version 2)
Quarter: 2025Q3

REPORT INFORMATION
  Report Type: Spontaneous
  Country: EU (occurrence: EU)
  Receive Date: 20250804
  Receipt Date: 20250811
  Transmission Date: 20251021
  Serious: Yes (Hospitalization, Other)
  Sender: MYLAN
  Company Number: EU-MYLANLABS-2025M1065328

PATIENT
  Age: 27 Year
  Sex: Female
  Weight: 60 kg

DRUGS (3)
  1. NORVASC [Suspect]
     Active Substance: AMLODIPINE BESYLATE
     Indication: Hypertension
  2. NORVASC [Suspect]
     Active Substance: AMLODIPINE BESYLATE
     Dosage: 5 MILLIGRAM, QD
     Dates: start: 20250803
  3. Doxar [Concomitant]
     Dosage: UNK, AM

REACTIONS (10)
  - Renal failure [Unknown]
  - Nephrocalcinosis [Unknown]
  - Drug ineffective [Unknown]
  - Pigmentation disorder [Unknown]
  - Joint swelling [Unknown]
  - Polyuria [Unknown]
  - Oedema [Unknown]
  - Insomnia [Unknown]
  - Alopecia [Unknown]
  - Rash macular [Unknown]

NARRATIVE: CASE EVENT DATE: 20250101
